FAERS Safety Report 18905802 (Version 1)
Quarter: 2021Q1

REPORT INFORMATION
  Report Type: Spontaneous
  Country: US (occurrence: US)
  Receive Date: 20210217
  Receipt Date: 20210217
  Transmission Date: 20210420
  Serious: Yes (Other)
  Sender: FDA-Public Use
  Company Number: US-ELI_LILLY_AND_COMPANY-US202102004696

PATIENT
  Age: 54 Year
  Sex: Male

DRUGS (2)
  1. BASAGLAR [Suspect]
     Active Substance: INSULIN GLARGINE
     Indication: TYPE 2 DIABETES MELLITUS
     Dosage: 45 U, DAILY (SLIDING SCALE)
     Route: 065
     Dates: start: 2017
  2. NOVOLOG [Concomitant]
     Active Substance: INSULIN ASPART
     Indication: TYPE 2 DIABETES MELLITUS

REACTIONS (13)
  - Blood glucose increased [Recovering/Resolving]
  - Confusional state [Recovering/Resolving]
  - Somnolence [Recovering/Resolving]
  - Malaise [Recovering/Resolving]
  - Syncope [Recovering/Resolving]
  - Blood glucose decreased [Recovering/Resolving]
  - Urinary incontinence [Recovering/Resolving]
  - Fall [Recovering/Resolving]
  - Wrong technique in product usage process [Unknown]
  - Lethargy [Recovering/Resolving]
  - Memory impairment [Recovering/Resolving]
  - Fatigue [Recovering/Resolving]
  - Tremor [Recovering/Resolving]

NARRATIVE: CASE EVENT DATE: 20201224
